FAERS Safety Report 4267249-2 (Version None)
Quarter: 2004Q1

REPORT INFORMATION
  Report Type: 
  Country: None (occurrence: None)
  Receive Date: 20040107
  Receipt Date: 20031225
  Transmission Date: 20041129
  Serious: Yes (Hospitalization)
  Sender: FDA-Public Use
  Company Number: 2003121039

PATIENT
  Sex: Male

DRUGS (6)
  1. NORVASC [Suspect]
     Indication: ILL-DEFINED DISORDER
     Dosage: ORAL
     Route: 048
  2. LICORICE/PEONY (LIQUORICE) [Suspect]
     Indication: ILL-DEFINED DISORDER
     Dosage: ORAL
     Route: 048
  3. NIZATIDINE [Concomitant]
  4. ALFACALCIDOL (ALFACALCIDOL) [Concomitant]
  5. RISEDRONATE SODIUM (RISEDRONATE SODIUM) [Concomitant]
  6. EPERISONE HYDROCHLORIDE (EPERISONE HYDROCHLORIDE) [Concomitant]

REACTIONS (1)
  - HYPOKALAEMIA [None]
